FAERS Safety Report 23256295 (Version 1)
Quarter: 2023Q4

REPORT INFORMATION
  Report Type: Spontaneous
  Country: US (occurrence: US)
  Receive Date: 20231204
  Receipt Date: 20231204
  Transmission Date: 20240110
  Serious: Yes (Other)
  Sender: FDA-Public Use
  Company Number: US-ROCHE-3173548

PATIENT
  Sex: Male

DRUGS (2)
  1. VALGANCICLOVIR [Suspect]
     Active Substance: VALGANCICLOVIR
     Indication: Renal transplant
     Dosage: ONE 450MG TABLET?DAILY DOSE: 450 MILLIGRAM
  2. CELLCEPT [Suspect]
     Active Substance: MYCOPHENOLATE MOFETIL
     Indication: Renal transplant
     Dosage: TWO 500MG TABLETS?DAILY DOSE: 1000 MILLIGRAM

REACTIONS (5)
  - Cerebrovascular accident [Unknown]
  - Dysgraphia [Unknown]
  - Renal failure [Unknown]
  - Diabetes mellitus [Unknown]
  - Product use in unapproved indication [Unknown]

NARRATIVE: CASE EVENT DATE: 20200101
